FAERS Safety Report 8268356-X (Version None)
Quarter: 2012Q2

REPORT INFORMATION
  Report Type: 
  Country: None (occurrence: None)
  Receive Date: 20120409
  Receipt Date: 20120330
  Transmission Date: 20120825
  Serious: Yes (Hospitalization)
  Sender: FDA-Public Use
  Company Number: US-BAYER-2011-105666

PATIENT
  Age: 33 Year
  Sex: Female
  Weight: 66 kg

DRUGS (6)
  1. YASMIN [Suspect]
     Indication: ACNE
  2. ORTHO CYCLEN-28 [Concomitant]
  3. ANILIDES [Concomitant]
  4. PRILOSEC [Concomitant]
  5. VALTREX [Concomitant]
  6. YASMIN [Suspect]
     Indication: CONTRACEPTION
     Dosage: UNK
     Dates: start: 20080101, end: 20111001

REACTIONS (7)
  - ANXIETY [None]
  - ABDOMINAL PAIN [None]
  - PAIN [None]
  - EMOTIONAL DISTRESS [None]
  - CHOLECYSTITIS CHRONIC [None]
  - INJURY [None]
  - CHOLELITHIASIS [None]
